FAERS Safety Report 18711185 (Version 5)
Quarter: 2021Q4

REPORT INFORMATION
  Report Type: Report from Study
  Country: CA (occurrence: CA)
  Receive Date: 20210107
  Receipt Date: 20211014
  Transmission Date: 20220304
  Serious: Yes (Hospitalization, Other)
  Sender: FDA-Public Use
  Company Number: CA-JNJFOC-20210104591

PATIENT
  Age: 76 Year
  Sex: Male
  Weight: 80.4 kg

DRUGS (3)
  1. REMICADE [Suspect]
     Active Substance: INFLIXIMAB
     Indication: Crohn^s disease
     Dosage: MAR-2020
     Route: 042
     Dates: start: 20191114
  2. REMICADE [Suspect]
     Active Substance: INFLIXIMAB
     Route: 042
  3. REMICADE [Suspect]
     Active Substance: INFLIXIMAB
     Route: 042

REACTIONS (11)
  - Small intestinal resection [Recovering/Resolving]
  - Haematochezia [Recovered/Resolved]
  - Defaecation urgency [Not Recovered/Not Resolved]
  - Flatulence [Unknown]
  - Proctalgia [Unknown]
  - Frequent bowel movements [Not Recovered/Not Resolved]
  - Drug ineffective [Unknown]
  - Abdominal pain [Not Recovered/Not Resolved]
  - Diarrhoea [Not Recovered/Not Resolved]
  - Incorrect drug administration rate [Unknown]
  - Off label use [Unknown]

NARRATIVE: CASE EVENT DATE: 20201230
